FAERS Safety Report 4386201-X (Version None)
Quarter: 2004Q2

REPORT INFORMATION
  Report Type: 
  Country: None (occurrence: None)
  Receive Date: 20040628
  Receipt Date: 20040628
  Transmission Date: 20050107
  Serious: No
  Sender: FDA-Public Use
  Company Number: None

PATIENT
  Age: 48 Year
  Sex: Male

DRUGS (1)
  1. TRAVATAN [Suspect]

REACTIONS (3)
  - EYE IRRITATION [None]
  - EYE PRURITUS [None]
  - PHOTOPHOBIA [None]
